FAERS Safety Report 5597536-7 (Version None)
Quarter: 2008Q1

REPORT INFORMATION
  Report Type: 
  Country: None (occurrence: None)
  Receive Date: 20080121
  Receipt Date: 20080108
  Transmission Date: 20080703
  Serious: Yes (Hospitalization)
  Sender: FDA-Public Use
  Company Number: GB-ROCHE-540379

PATIENT
  Age: 53 Year
  Sex: Female
  Weight: 99.3 kg

DRUGS (2)
  1. ORLISTAT [Suspect]
     Indication: OBESITY
     Route: 048
     Dates: start: 20070625
  2. INSULIN [Concomitant]

REACTIONS (5)
  - APHASIA [None]
  - DEAFNESS [None]
  - HEADACHE [None]
  - HYPOKINESIA [None]
  - IMMOBILE [None]
